FAERS Safety Report 6928274-3 (Version None)
Quarter: 2010Q3

REPORT INFORMATION
  Report Type: 
  Country: None (occurrence: None)
  Receive Date: 20100817
  Receipt Date: 20100809
  Transmission Date: 20110219
  Serious: Yes (Other)
  Sender: FDA-Public Use
  Company Number: DE-B.I. PHARMACEUTICALS,INC./RIDGEFIELD-2010-DE-03899DE

PATIENT
  Sex: Female

DRUGS (3)
  1. PRAMIPEXOLE DIHYDROCHLORIDE [Suspect]
     Indication: PARKINSON'S DISEASE
     Dosage: 2.8 MG
  2. LEVODOPA [Concomitant]
     Dosage: 5-6
  3. AMANTADIN 100 MG [Concomitant]
     Dosage: 200 MG

REACTIONS (1)
  - CAESAREAN SECTION [None]
